FAERS Safety Report 20819173 (Version 1)
Quarter: 2022Q2

REPORT INFORMATION
  Report Type: Spontaneous
  Country: US (occurrence: None)
  Receive Date: 20220511
  Receipt Date: 20220511
  Transmission Date: 20220720
  Serious: Yes (Other)
  Sender: FDA-Public Use
  Company Number: None

PATIENT
  Age: 59 Year
  Sex: Female
  Weight: 59.85 kg

DRUGS (5)
  1. PROLIA [Suspect]
     Active Substance: DENOSUMAB
     Dates: start: 20210909, end: 20210909
  2. ARMOUR THYROID [Concomitant]
     Active Substance: THYROID, PORCINE
  3. Multi vitamin calcium probiotics [Concomitant]
  4. VITAMIN B COMPLEX [Concomitant]
     Active Substance: CYANOCOBALAMIN\DEXPANTHENOL\NIACINAMIDE\PYRIDOXINE HYDROCHLORIDE\RIBOFLAVIN 5^-PHOSPHATE SODIUM\THIA
  5. CALCIUM [Concomitant]
     Active Substance: CALCIUM

REACTIONS (15)
  - Pain in jaw [None]
  - Diarrhoea [None]
  - Abdominal pain upper [None]
  - Nausea [None]
  - Flatulence [None]
  - Thirst [None]
  - Joint noise [None]
  - Ear discomfort [None]
  - Hypoacusis [None]
  - Rash [None]
  - Lyme disease [None]
  - Bladder pain [None]
  - Candida infection [None]
  - Back pain [None]
  - Neck pain [None]

NARRATIVE: CASE EVENT DATE: 20210909
